FAERS Safety Report 12536403 (Version 3)
Quarter: 2017Q4

REPORT INFORMATION
  Report Type: Report from Study
  Country: PK (occurrence: PK)
  Receive Date: 20160707
  Receipt Date: 20171115
  Transmission Date: 20180320
  Serious: Yes (Death, Hospitalization)
  Sender: FDA-Public Use
  Company Number: PK-SUN PHARMACEUTICAL INDUSTRIES LTD-2016R1-119595

PATIENT
  Age: 58 Year
  Sex: Male

DRUGS (2)
  1. PYRIMETHAMINE [Interacting]
     Active Substance: PYRIMETHAMINE
     Indication: PRODUCT USED FOR UNKNOWN INDICATION
     Dosage: 100 MG, BID
     Route: 065
  2. ISOTAB-20 (ISOSORBIDE MONONITRATE) [Suspect]
     Active Substance: ISOSORBIDE MONONITRATE
     Indication: CARDIAC DISORDER
     Dosage: BID
     Route: 065

REACTIONS (14)
  - Toxicity to various agents [Fatal]
  - Spleen congestion [None]
  - Pulmonary congestion [None]
  - Hepatic congestion [None]
  - Arteriosclerosis coronary artery [None]
  - Kidney congestion [None]
  - Ventricular fibrillation [Fatal]
  - Mucosal erosion [None]
  - Acute coronary syndrome [Fatal]
  - Bone marrow failure [Fatal]
  - Melanocytic hyperplasia [None]
  - Product contamination [Fatal]
  - Myocardial ischaemia [Fatal]
  - Drug interaction [Fatal]

NARRATIVE: CASE EVENT DATE: 20120128
